FAERS Safety Report 4807570-X (Version None)
Quarter: 2005Q4

REPORT INFORMATION
  Report Type: 
  Country: None (occurrence: None)
  Receive Date: 20051024
  Receipt Date: 20051019
  Transmission Date: 20060501
  Serious: Yes (Death)
  Sender: FDA-Public Use
  Company Number: 2005UW15768

PATIENT
  Sex: Male

DRUGS (1)
  1. PRILOSEC [Suspect]
     Route: 048

REACTIONS (4)
  - DEATH [None]
  - FUNGAL INFECTION [None]
  - GASTRIC CANCER [None]
  - OESOPHAGEAL INFECTION [None]
